FAERS Safety Report 5165246-6 (Version None)
Quarter: 2006Q4

REPORT INFORMATION
  Report Type: 
  Country: None (occurrence: None)
  Receive Date: 20061124
  Receipt Date: 20061115
  Transmission Date: 20070319
  Serious: Yes (Hospitalization, Other)
  Sender: FDA-Public Use
  Company Number: 2006141188

PATIENT
  Sex: Male

DRUGS (7)
  1. XANAX [Suspect]
     Dates: start: 19910101, end: 20030101
  2. DIPHENHYDRAMINE HCL [Suspect]
  3. CLONAZEPAM [Suspect]
  4. TYLENOL W/ CODEINE NO. 3 [Suspect]
     Indication: BACK PAIN
     Dates: start: 20010101, end: 20030101
  5. METHADONE HCL [Suspect]
  6. RESTORIL [Suspect]
  7. TYLENOL W/ CODEINE [Concomitant]

REACTIONS (13)
  - BRUXISM [None]
  - CRYING [None]
  - DECREASED APPETITE [None]
  - DECREASED INTEREST [None]
  - DRUG DEPENDENCE [None]
  - DRUG DOSE OMISSION [None]
  - DRUG WITHDRAWAL CONVULSIONS [None]
  - FEAR [None]
  - FEELING OF DESPAIR [None]
  - INSOMNIA [None]
  - MUSCLE TWITCHING [None]
  - NIGHTMARE [None]
  - TREMOR [None]
